FAERS Safety Report 23069928 (Version 1)
Quarter: 2023Q4

REPORT INFORMATION
  Report Type: Spontaneous
  Country: PT (occurrence: PT)
  Receive Date: 20231016
  Receipt Date: 20231016
  Transmission Date: 20240110
  Serious: Yes (Death, Hospitalization)
  Sender: FDA-Public Use
  Company Number: PT-PFIZER INC-202300320337

PATIENT
  Age: 86 Year
  Sex: Male

DRUGS (1)
  1. TAFAMIDIS MEGLUMINE [Suspect]
     Active Substance: TAFAMIDIS MEGLUMINE
     Indication: Cardiac amyloidosis
     Dosage: 61 MG
     Route: 048
     Dates: start: 20220302, end: 20230203

REACTIONS (3)
  - Lymphocytic lymphoma [Fatal]
  - Pneumocystis jirovecii pneumonia [Fatal]
  - Leukaemoid reaction [Fatal]

NARRATIVE: CASE EVENT DATE: 20230201
